FAERS Safety Report 15917154 (Version 1)
Quarter: 2019Q1

REPORT INFORMATION
  Report Type: Spontaneous
  Country: IT (occurrence: IT)
  Receive Date: 20190205
  Receipt Date: 20190205
  Transmission Date: 20190417
  Serious: Yes (Other)
  Sender: FDA-Public Use
  Company Number: IT-AXELLIA-002220

PATIENT
  Age: 77 Year

DRUGS (10)
  1. ENOXAPARIN [Concomitant]
     Active Substance: ENOXAPARIN
  2. CARVEDILOL ACCORD [Concomitant]
     Route: 048
  3. CARDIOASPIRIN [Concomitant]
     Active Substance: ASPIRIN
     Route: 048
  4. VORICONAZOLE. [Suspect]
     Active Substance: VORICONAZOLE
     Indication: BRONCHOPULMONARY ASPERGILLOSIS
     Dosage: ALSO RECEIVED 400 MG (18-JAN-19 TO 19--JAN-19) VIA ORAL
     Route: 042
     Dates: start: 20190114, end: 20190117
  5. FUROSEMIDE. [Concomitant]
     Active Substance: FUROSEMIDE
     Route: 042
  6. DOPAMINE [Concomitant]
     Active Substance: DOPAMINE\DOPAMINE HYDROCHLORIDE
     Route: 042
  7. DIBASE [Concomitant]
     Active Substance: CHOLECALCIFEROL
  8. ALLOPURINOL. [Concomitant]
     Active Substance: ALLOPURINOL
     Route: 048
  9. PANTOPRAZOLE [Concomitant]
     Active Substance: PANTOPRAZOLE
  10. SANDIMMUN [Concomitant]
     Active Substance: CYCLOSPORINE
     Dosage: 25 MG SOFT CAPSULES

REACTIONS (2)
  - Disorientation [Not Recovered/Not Resolved]
  - Agitation [Not Recovered/Not Resolved]

NARRATIVE: CASE EVENT DATE: 20190118
